FAERS Safety Report 15897419 (Version 2)
Quarter: 2019Q2

REPORT INFORMATION
  Report Type: Spontaneous
  Country: DE (occurrence: DE)
  Receive Date: 20190131
  Receipt Date: 20190418
  Transmission Date: 20190711
  Serious: Yes (Other)
  Sender: FDA-Public Use
  Company Number: PHHY2019DE022576

PATIENT

DRUGS (1)
  1. INTERFERON BETA-1B [Suspect]
     Active Substance: INTERFERON BETA-1B
     Indication: MULTIPLE SCLEROSIS
     Dosage: 250 UG, BID
     Route: 058
     Dates: start: 20180903

REACTIONS (5)
  - Injection site induration [Not Recovered/Not Resolved]
  - Influenza like illness [Recovered/Resolved]
  - Lipoedema [Not Recovered/Not Resolved]
  - Injection site reaction [Recovered/Resolved]
  - Lack of injection site rotation [Unknown]

NARRATIVE: CASE EVENT DATE: 20181215
